FAERS Safety Report 8884783 (Version 1)
Quarter: 2012Q4

REPORT INFORMATION
  Report Type: 
  Country: US (occurrence: US)
  Receive Date: 20121102
  Receipt Date: 20121102
  Transmission Date: 20130627
  Serious: No
  Sender: FDA-Public Use
  Company Number: US-ASTRAZENECA-2010SE34137

PATIENT
  Sex: Female

DRUGS (8)
  1. PRILOSEC [Suspect]
     Route: 048
  2. NEXIUM [Concomitant]
  3. ALLERGA [Concomitant]
  4. ZOLOFT [Concomitant]
  5. SULFA [Concomitant]
  6. PENCILLIAN [Concomitant]
  7. PREVACID [Concomitant]
  8. PROTONIX [Concomitant]

REACTIONS (2)
  - Dyspepsia [Unknown]
  - Drug ineffective [Unknown]
